FAERS Safety Report 6269103-3 (Version None)
Quarter: 2009Q3

REPORT INFORMATION
  Report Type: 
  Country: None (occurrence: None)
  Receive Date: 20090715
  Receipt Date: 20090710
  Transmission Date: 20100115
  Serious: Yes (Hospitalization)
  Sender: FDA-Public Use
  Company Number: IE-BRISTOL-MYERS SQUIBB COMPANY-14674733

PATIENT
  Age: 30 Year
  Sex: Male
  Weight: 146 kg

DRUGS (9)
  1. ABILIFY [Suspect]
     Indication: SCHIZOPHRENIA
     Route: 048
     Dates: start: 20090113, end: 20090422
  2. CLOZAPINE [Suspect]
     Indication: SCHIZOPHRENIA
     Dates: start: 20070101, end: 20090105
  3. VENLAFAXINE HCL [Concomitant]
     Indication: SCHIZOPHRENIA
     Route: 048
     Dates: start: 20080101
  4. RAMIPRIL [Concomitant]
     Indication: HYPERTENSION
     Route: 048
     Dates: start: 20080101
  5. ISTIN [Concomitant]
     Indication: HYPERTENSION
     Route: 048
     Dates: start: 20080101
  6. TOPAMAX [Concomitant]
     Indication: OBESITY
     Route: 048
  7. FLURAZEPAM [Concomitant]
     Indication: HYPNOTHERAPY
     Route: 048
     Dates: start: 20080101
  8. DUPHALAC [Concomitant]
     Indication: CONSTIPATION
     Route: 048
     Dates: start: 20080101
  9. AMISULPRIDE [Concomitant]
     Indication: SCHIZOPHRENIA
     Route: 048
     Dates: start: 20080101

REACTIONS (3)
  - CONDITION AGGRAVATED [None]
  - PSYCHOMOTOR HYPERACTIVITY [None]
  - WEIGHT DECREASED [None]
